FAERS Safety Report 25066117 (Version 2)
Quarter: 2025Q4

REPORT INFORMATION
  Report Type: Spontaneous
  Country: US (occurrence: US)
  Receive Date: 20250312
  Receipt Date: 20251003
  Transmission Date: 20260118
  Serious: Yes (Death, Hospitalization, Other)
  Sender: CSL BEHRING
  Company Number: US-BEH-2025198271

PATIENT
  Age: 73 Year
  Sex: Female

DRUGS (2)
  1. HIZENTRA [Suspect]
     Active Substance: HUMAN IMMUNOGLOBULIN G
     Indication: Immunodeficiency common variable
     Dosage: 2 G, QW (PRODUCT STRENGTH REPORTED AS 0.2GM/ML)
     Route: 058
     Dates: start: 202206
  2. HIZENTRA [Suspect]
     Active Substance: HUMAN IMMUNOGLOBULIN G
     Dosage: 4 G, QW (PRODUCT STRENGTH REPORTED AS 0.2GM/ML)
     Route: 058
     Dates: start: 202206

REACTIONS (2)
  - Pulmonary fibrosis [Fatal]
  - Malaise [Unknown]

NARRATIVE: CASE EVENT DATE: 20250924
